FAERS Safety Report 8989726 (Version 1)
Quarter: 2012Q4

REPORT INFORMATION
  Report Type: 
  Country: US (occurrence: US)
  Receive Date: 20121228
  Receipt Date: 20121228
  Transmission Date: 20130627
  Serious: No
  Sender: FDA-Public Use
  Company Number: US-ASTRAZENECA-2012SE93915

PATIENT
  Age: 68 Year
  Sex: Female
  Weight: 77.1 kg

DRUGS (11)
  1. SYMBICORT [Suspect]
     Indication: CHRONIC OBSTRUCTIVE PULMONARY DISEASE
     Dosage: 160 MCG, BID
     Route: 055
     Dates: start: 2009
  2. OMEPRAZOLE [Suspect]
     Route: 048
  3. NORVASC [Concomitant]
  4. DIOVAN [Concomitant]
  5. PAXIL [Concomitant]
  6. KLONOPIN [Concomitant]
     Dosage: PRN
  7. XANAX [Concomitant]
     Dosage: PRN
  8. TYLENOL [Concomitant]
  9. ASA [Concomitant]
  10. VITAMINS [Concomitant]
  11. ROBITUSSIN AC [Concomitant]

REACTIONS (3)
  - Foreign body [Not Recovered/Not Resolved]
  - Productive cough [Not Recovered/Not Resolved]
  - Retching [Unknown]
